FAERS Safety Report 6994514-8 (Version None)
Quarter: 2010Q3

REPORT INFORMATION
  Report Type: 
  Country: None (occurrence: None)
  Receive Date: 20100917
  Receipt Date: 20100910
  Transmission Date: 20110219
  Serious: Yes (Other)
  Sender: FDA-Public Use
  Company Number: US-JNJCH-2010020785

PATIENT
  Age: 40 Year
  Sex: Male
  Weight: 82.6 kg

DRUGS (1)
  1. LISTERINE TOTAL CARE PLUS WHITENING [Suspect]
     Indication: DENTAL DISORDER PROPHYLAXIS
     Dosage: TEXT:CAPFUL TWICE A DAY
     Route: 048

REACTIONS (4)
  - APPLICATION SITE BURN [None]
  - GINGIVAL DISCOLOURATION [None]
  - GINGIVAL DISORDER [None]
  - PRODUCT QUALITY ISSUE [None]
